FAERS Safety Report 7007901 (Version 3)
Quarter: 2012Q4

REPORT INFORMATION
  Report Type: 
  Country: US (occurrence: US)
  Receive Date: 20051012
  Receipt Date: 20121101
  Transmission Date: 20130627
  Serious: Yes (Other)
  Sender: FDA-Public Use
  Company Number: US-PFIZER INC-2005137879

PATIENT
  Age: 49 Year
  Sex: Female

DRUGS (11)
  1. PROVERA [Suspect]
     Indication: HORMONE REPLACEMENT THERAPY
     Dosage: UNK
     Route: 048
     Dates: start: 1997, end: 1998
  2. PREMARIN [Suspect]
     Indication: HORMONE REPLACEMENT THERAPY
     Dosage: ^0.9^
     Route: 048
     Dates: start: 1997, end: 1998
  3. PREMARIN [Suspect]
     Dosage: ^1.25^
     Dates: start: 1998, end: 2000
  4. PREMARIN [Suspect]
     Dosage: ^0.3^
     Dates: start: 1998, end: 2000
  5. ESTRADIOL [Suspect]
     Indication: HORMONE REPLACEMENT THERAPY
     Dosage: 2 mg
     Route: 048
     Dates: start: 2000
  6. MEDROXYPROGESTERONE ACETATE [Suspect]
     Indication: HORMONE REPLACEMENT THERAPY
     Dosage: 5 mg
     Route: 048
     Dates: start: 2000
  7. CYCRIN [Suspect]
     Indication: HORMONE REPLACEMENT THERAPY
     Dosage: 5 mg
     Route: 048
     Dates: start: 1998, end: 1999
  8. MEDROXYPROGESTERONE ACETATE [Suspect]
     Indication: HORMONE REPLACEMENT THERAPY
     Dosage: UNK
     Route: 048
     Dates: start: 200003, end: 200009
  9. MAXZIDE [Concomitant]
     Indication: FLUID RETENTION
     Dosage: UNK
     Dates: start: 1990
  10. WELLBUTRIN [Concomitant]
     Indication: DEPRESSION
     Dosage: UNK
     Dates: start: 1995
  11. ZOLOFT [Concomitant]
     Indication: DEPRESSION
     Dosage: UNK
     Dates: start: 1995

REACTIONS (1)
  - Breast cancer female [Unknown]
